FAERS Safety Report 12579169 (Version 1)
Quarter: 2016Q3

REPORT INFORMATION
  Report Type: Spontaneous
  Country: US (occurrence: US)
  Receive Date: 20160721
  Receipt Date: 20160721
  Transmission Date: 20161109
  Serious: Yes (Other)
  Sender: FDA-Public Use
  Company Number: US-PFIZER INC-3242725

PATIENT
  Sex: Male
  Weight: 95.45 kg

DRUGS (2)
  1. GENTAMICIN SULFATE. [Suspect]
     Active Substance: GENTAMICIN SULFATE
     Indication: CYSTITIS
     Dosage: UNK
     Route: 042
  2. ZOSYN [Suspect]
     Active Substance: PIPERACILLIN SODIUM\TAZOBACTAM SODIUM
     Indication: CYSTITIS
     Dosage: UNK
     Route: 042

REACTIONS (3)
  - Nausea [Recovered/Resolved]
  - Paraesthesia [Unknown]
  - Decreased appetite [Unknown]
